FAERS Safety Report 6527487-2 (Version None)
Quarter: 2010Q1

REPORT INFORMATION
  Report Type: 
  Country: None (occurrence: None)
  Receive Date: 20100105
  Receipt Date: 20091222
  Transmission Date: 20100710
  Serious: Yes (Death)
  Sender: FDA-Public Use
  Company Number: US-MYLANLABS-2009S1021794

PATIENT
  Age: 65 Year
  Sex: Male

DRUGS (10)
  1. PREDNISONE [Suspect]
     Indication: POLYNEUROPATHY
     Dosage: HIGH-DOSE
     Dates: start: 19960101, end: 20011001
  2. PREDNISONE [Suspect]
     Dosage: 9-30 MG/DAY
     Dates: start: 19960101, end: 20011001
  3. PREDNISONE [Suspect]
     Dosage: 6-35 MG/DAY
     Dates: start: 19960101, end: 20011001
  4. AZATHIOPRINE [Suspect]
     Indication: POLYNEUROPATHY
     Dosage: TITRATED TO 200 MG/DAY
  5. METHOTREXATE [Suspect]
     Indication: POLYNEUROPATHY
     Dosage: 7.5-30MG WEEKLY
  6. METHOTREXATE [Suspect]
     Dosage: HIGH-DOSE
     Dates: start: 20070201, end: 20070601
  7. CELLCEPT [Suspect]
     Indication: POLYNEUROPATHY
     Dosage: DOSE TITRATED TO 2500 MG/DAY
     Dates: start: 20010101, end: 20061101
  8. RITUXIMAB [Suspect]
     Indication: B-CELL LYMPHOMA
     Dates: start: 20061106, end: 20070501
  9. RITUXIMAB [Suspect]
     Dosage: SIX DOSES (CYCLES)
     Dates: start: 20061106, end: 20070501
  10. RITUXIMAB [Suspect]
     Dosage: SIX DOSES (CYCLES)
     Dates: start: 20061106, end: 20070501

REACTIONS (2)
  - B-CELL LYMPHOMA [None]
  - MALIGNANT MELANOMA [None]
